FAERS Safety Report 15949915 (Version 2)
Quarter: 2019Q1

REPORT INFORMATION
  Report Type: Report from Study
  Country: CZ (occurrence: CZ)
  Receive Date: 20190211
  Receipt Date: 20190219
  Transmission Date: 20190417
  Serious: Yes (Other)
  Sender: FDA-Public Use
  Company Number: CZ-JNJFOC-20190202348

PATIENT

DRUGS (1)
  1. USTEKINUMAB [Suspect]
     Active Substance: USTEKINUMAB
     Indication: CROHN^S DISEASE
     Route: 058
     Dates: start: 2017

REACTIONS (6)
  - Arthralgia [Unknown]
  - Rash [Unknown]
  - Drug level decreased [Unknown]
  - Pyrexia [Unknown]
  - Demyelinating polyneuropathy [Unknown]
  - Therapy non-responder [Unknown]
